FAERS Safety Report 17317407 (Version 8)
Quarter: 2020Q2

REPORT INFORMATION
  Report Type: Report from Study
  Country: DE (occurrence: DE)
  Receive Date: 20200124
  Receipt Date: 20200528
  Transmission Date: 20200713
  Serious: Yes (Hospitalization, Other)
  Sender: FDA-Public Use
  Company Number: DE-MYLANLABS-2019M1122082

PATIENT
  Sex: Female
  Weight: 62 kg

DRUGS (9)
  1. KISQALI [Suspect]
     Active Substance: RIBOCICLIB
     Dosage: 400 MILLIGRAM, QD (21 DAYS INTAKE, 7 DAYS PAUSE)
     Route: 048
     Dates: start: 20191127
  2. FULVESTRANT. [Suspect]
     Active Substance: FULVESTRANT
     Dosage: 500 MILLIGRAM, QD(EVERY 4 WEEKS)
     Route: 030
     Dates: start: 20191127
  3. KISQALI [Suspect]
     Active Substance: RIBOCICLIB
     Dosage: 400 MILLIGRAM, QD (21 DAYS INTAKE, 7 DAYS PAUSE)
     Route: 048
     Dates: start: 20191030, end: 20191119
  4. FULVESTRANT. [Suspect]
     Active Substance: FULVESTRANT
     Dosage: 500 MILLIGRAM, QD(500 MG, QD (500 MG, QD (EVERY 4 WEEKS)))
     Route: 030
     Dates: start: 20191223
  5. KISQALI [Suspect]
     Active Substance: RIBOCICLIB
     Indication: BREAST CANCER METASTATIC
     Dosage: 600 MILLIGRAM, QD (600 MG, QD (21 DAYS INTAKE, 7 DAYS PAUSE))
     Route: 048
     Dates: start: 20190626, end: 20190806
  6. KISQALI [Suspect]
     Active Substance: RIBOCICLIB
     Dosage: 400 MILLIGRAM, QD (400 MG, QD (21 DAYS INTAKE, 7 DAYS PAUSE))
     Route: 048
     Dates: start: 20190821, end: 20190917
  7. KISQALI [Suspect]
     Active Substance: RIBOCICLIB
     Dosage: 400 MILLIGRAM, QD(400 MG, QD (21 DAYS INTAKE, 7 DAYS PAUSE))
     Route: 048
     Dates: start: 20200114
  8. FULVESTRANT. [Suspect]
     Active Substance: FULVESTRANT
     Indication: BREAST CANCER METASTATIC
     Dosage: 500 MILLIGRAM, Q28D (EVERY 4 WEEKS)
     Route: 030
     Dates: start: 20190626, end: 20191119
  9. KISQALI [Suspect]
     Active Substance: RIBOCICLIB
     Dosage: 400 MILLIGRAM (400 MG, (21 DAYS INTAKE, 7 DAYS PAUSE))
     Route: 048
     Dates: start: 20190925, end: 20191022

REACTIONS (8)
  - Gastrointestinal haemorrhage [Recovered/Resolved]
  - Large intestinal ulcer [Recovered/Resolved]
  - Neutropenia [Recovered/Resolved]
  - Gastritis [Recovered/Resolved]
  - Cough [Recovered/Resolved]
  - Leukopenia [Recovered/Resolved]
  - Herpes zoster [Recovered/Resolved]
  - Bone pain [Not Recovered/Not Resolved]

NARRATIVE: CASE EVENT DATE: 201906
